FAERS Safety Report 6822431-2 (Version None)
Quarter: 2010Q3

REPORT INFORMATION
  Report Type: 
  Country: None (occurrence: None)
  Receive Date: 20100707
  Receipt Date: 20100707
  Transmission Date: 20110219
  Serious: Yes (Death)
  Sender: FDA-Public Use
  Company Number: None

PATIENT
  Sex: Female
  Weight: 64 kg

DRUGS (3)
  1. SORAFENIB BAYER [Suspect]
     Indication: NON-SMALL CELL LUNG CANCER
     Dosage: 600 MG TWICE DAILY ORAL
     Route: 048
     Dates: start: 20100624, end: 20100704
  2. BENZONATATE [Concomitant]
  3. WARFARIN SODIUM [Concomitant]

REACTIONS (2)
  - HAEMOPTYSIS [None]
  - UPPER RESPIRATORY TRACT INFECTION [None]
